FAERS Safety Report 14425466 (Version 1)
Quarter: 2018Q1

REPORT INFORMATION
  Report Type: Other
  Country: CH (occurrence: CH)
  Receive Date: 20180123
  Receipt Date: 20180123
  Transmission Date: 20180509
  Serious: Yes (Hospitalization, Other)
  Sender: FDA-Public Use
  Company Number: CH-ASTELLAS-2018US003243

PATIENT
  Age: 34 Year
  Sex: Female
  Weight: 55 kg

DRUGS (8)
  1. NEXIUM [Concomitant]
     Active Substance: ESOMEPRAZOLE MAGNESIUM
     Indication: PRODUCT USED FOR UNKNOWN INDICATION
     Route: 048
  2. PREDNISON STREULI [Concomitant]
     Active Substance: PREDNISONE
     Indication: PRODUCT USED FOR UNKNOWN INDICATION
     Route: 048
  3. PROGRAF [Suspect]
     Active Substance: TACROLIMUS\TACROLIMUS ANHYDROUS
     Indication: IMMUNOSUPPRESSION
     Route: 048
  4. MYFORTIC [Suspect]
     Active Substance: MYCOPHENOLATE SODIUM
     Indication: IMMUNOSUPPRESSION
     Route: 048
  5. MYFORTIC [Suspect]
     Active Substance: MYCOPHENOLATE SODIUM
     Route: 048
     Dates: end: 201712
  6. PROGRAF [Suspect]
     Active Substance: TACROLIMUS\TACROLIMUS ANHYDROUS
     Route: 048
  7. SULFAMETHOXAZOLE [Suspect]
     Active Substance: SULFAMETHOXAZOLE
     Indication: PROPHYLAXIS
     Dosage: 800/160 MG, THRICE WEEKLY
     Route: 048
     Dates: end: 201712
  8. CALCIMAGON D3 [Concomitant]
     Active Substance: CALCIUM\CHOLECALCIFEROL
     Indication: PRODUCT USED FOR UNKNOWN INDICATION
     Dosage: UNK UNK, ONCE DAILY
     Route: 048

REACTIONS (3)
  - Immunosuppressant drug level increased [Unknown]
  - Febrile neutropenia [Recovered/Resolved]
  - Escherichia test positive [Unknown]

NARRATIVE: CASE EVENT DATE: 20171205
